FAERS Safety Report 9166806 (Version 1)
Quarter: 2012Q4

REPORT INFORMATION
  Report Type: 
  Country: US (occurrence: US)
  Receive Date: 20121109
  Receipt Date: 20121109
  Transmission Date: 20130627
  Serious: Yes (Other)
  Sender: FDA-Public Use
  Company Number: US-RB-046474-12

PATIENT
  Age: 0 None
  Sex: Male

DRUGS (5)
  1. SUBOXONE FILM [Suspect]
     Indication: DRUG DEPENDENCE
     Dosage: Suboxone film
     Route: 064
     Dates: start: 201105, end: 20120201
  2. SUBOXONE FILM [Suspect]
     Dosage: Suboxone film
     Route: 063
     Dates: start: 20120201
  3. NICOTINE [Suspect]
     Dosage: Half a pack of cigarettes/daily
     Route: 064
     Dates: start: 201105, end: 20120201
  4. NICOTINE [Suspect]
     Indication: NICOTINE DEPENDENCE
     Dosage: Half a pack of cigarettes/daily
     Route: 063
     Dates: start: 20120201
  5. ANTINAUSEA MEDICATION [Suspect]
     Indication: NAUSEA
     Dosage: Dose details not provided; taken as needed
     Route: 064
     Dates: start: 201105, end: 20120201

REACTIONS (4)
  - Foetal exposure during pregnancy [Recovered/Resolved]
  - Low birth weight baby [Unknown]
  - Exposure during breast feeding [Not Recovered/Not Resolved]
  - Maternal drugs affecting foetus [None]
